FAERS Safety Report 19051578 (Version 1)
Quarter: 2021Q1

REPORT INFORMATION
  Report Type: Other
  Country: JP (occurrence: JP)
  Receive Date: 20210324
  Receipt Date: 20210324
  Transmission Date: 20210420
  Serious: Yes (Other)
  Sender: FDA-Public Use
  Company Number: JP-ROCHE-2794976

PATIENT
  Age: 53 Year
  Sex: Female

DRUGS (1)
  1. ALTEPLASE. [Suspect]
     Active Substance: ALTEPLASE
     Indication: BASILAR ARTERY STENOSIS
     Route: 042

REACTIONS (2)
  - Brain stem infarction [Unknown]
  - Vertebral artery dissection [Recovering/Resolving]
